FAERS Safety Report 11951950 (Version 13)
Quarter: 2017Q1

REPORT INFORMATION
  Report Type: Report from Study
  Country: CN (occurrence: CN)
  Receive Date: 20160126
  Receipt Date: 20170113
  Transmission Date: 20170428
  Serious: Yes (Death, Life-Threatening, Hospitalization)
  Sender: FDA-Public Use
  Company Number: CN-ROCHE-1676474

PATIENT
  Age: 61 Year
  Sex: Female
  Weight: 50 kg

DRUGS (25)
  1. CREATINE PHOSPHATE SODIUM [Concomitant]
     Active Substance: CREATINE
     Dosage: INDICATION - INTRAVENOUS HYPERALIMENTATION
     Route: 042
     Dates: start: 20151026, end: 20151121
  2. VITAMIN C [Concomitant]
     Active Substance: ASCORBIC ACID
     Dosage: INDICATION - INTRAVENOUS HYPERALIMENTATION
     Route: 042
     Dates: start: 20151026, end: 20151121
  3. VITAMIN B6 [Concomitant]
     Active Substance: PYRIDOXINE HYDROCHLORIDE
     Dosage: INDICATION - INTRAVENOUS HYPERALIMENTATION
     Route: 042
     Dates: start: 20151026, end: 20151121
  4. FUROSEMIDE. [Concomitant]
     Active Substance: FUROSEMIDE
     Indication: POLYURIA
     Route: 042
     Dates: start: 20151120, end: 20151120
  5. MEGESTROL [Concomitant]
     Active Substance: MEGESTROL
     Route: 048
     Dates: start: 20151113, end: 20151116
  6. KCL [Concomitant]
     Active Substance: POTASSIUM CHLORIDE
     Dosage: INDICATION - INTRAVENOUS HYPERALIMENTATION
     Route: 042
     Dates: start: 20151116, end: 20151118
  7. SMECTITE [Concomitant]
     Active Substance: MONTMORILLONITE
     Indication: DIARRHOEA
     Route: 048
     Dates: start: 20151113, end: 2015
  8. PLACEBO [Suspect]
     Active Substance: UNSPECIFIED INGREDIENT
     Indication: HER-2 POSITIVE GASTRIC CANCER
     Dosage: MOST RECENT DOSE PRIOR TO THE EVENT ON 20/NOV/2015
     Route: 042
     Dates: start: 20151027
  9. CISPLATIN. [Suspect]
     Active Substance: CISPLATIN
     Indication: HER-2 POSITIVE GASTRIC CANCER
     Dosage: MOST RECENT DOSE PRIOR TO THE EVENT ON 20/NOV/2015
     Route: 042
     Dates: start: 20151027
  10. PALONOSETRON [Concomitant]
     Active Substance: PALONOSETRON
     Indication: PROPHYLAXIS OF NAUSEA AND VOMITING
     Route: 042
     Dates: start: 20151027, end: 20151121
  11. PALONOSETRON [Concomitant]
     Active Substance: PALONOSETRON
     Indication: PROPHYLAXIS OF NAUSEA AND VOMITING
  12. POTASSIUM CHLORIDE. [Concomitant]
     Active Substance: POTASSIUM CHLORIDE
     Indication: HYPOKALAEMIA
     Route: 048
     Dates: start: 20151118, end: 20151121
  13. TRASTUZUMAB [Suspect]
     Active Substance: TRASTUZUMAB
     Dosage: MAINTAINCE DOSE; MOST RECENT DOSE PRIOR TO THE EVENT ON 20/NOV/2015
     Route: 042
  14. KCL [Concomitant]
     Active Substance: POTASSIUM CHLORIDE
     Dosage: INDICATION - INTRAVENOUS HYPERALIMENTATION
     Route: 042
     Dates: start: 20151026, end: 20151121
  15. APREPITANT. [Concomitant]
     Active Substance: APREPITANT
     Indication: PROPHYLAXIS OF NAUSEA AND VOMITING
     Route: 048
     Dates: start: 20151027, end: 20151122
  16. SMECTITE [Concomitant]
     Active Substance: MONTMORILLONITE
     Route: 065
     Dates: start: 20151205
  17. APREPITANT. [Concomitant]
     Active Substance: APREPITANT
     Indication: PROPHYLAXIS OF NAUSEA AND VOMITING
  18. LANSOPRAZOLE. [Concomitant]
     Active Substance: LANSOPRAZOLE
     Indication: PROPHYLAXIS OF NAUSEA AND VOMITING
  19. DEXAMETHASONE. [Concomitant]
     Active Substance: DEXAMETHASONE
     Indication: ALLERGY PROPHYLAXIS
     Route: 042
     Dates: start: 20151027, end: 20151121
  20. ESOMEPRAZOLE SODIUM. [Concomitant]
     Active Substance: ESOMEPRAZOLE SODIUM
     Dosage: INDICATION - TO PROTECT THE STOMACH
     Route: 042
     Dates: start: 20151028, end: 20151121
  21. BERBERINE [Concomitant]
     Active Substance: BERBERINE
     Indication: DIARRHOEA
     Route: 048
     Dates: start: 20151117, end: 2015
  22. TRASTUZUMAB [Suspect]
     Active Substance: TRASTUZUMAB
     Indication: HER-2 POSITIVE GASTRIC CANCER
     Dosage: LOADING DOSE
     Route: 042
     Dates: start: 20151027, end: 20151027
  23. LANSOPRAZOLE. [Concomitant]
     Active Substance: LANSOPRAZOLE
     Indication: PROPHYLAXIS OF NAUSEA AND VOMITING
     Route: 042
     Dates: start: 20151027, end: 20151120
  24. DIPHENHYDRAMINE. [Concomitant]
     Active Substance: DIPHENHYDRAMINE
     Indication: ALLERGY PROPHYLAXIS
     Route: 030
     Dates: start: 20151027, end: 20151120
  25. CAPECITABINE. [Suspect]
     Active Substance: CAPECITABINE
     Indication: HER-2 POSITIVE GASTRIC CANCER
     Dosage: MOST RECENT DOSE PRIOR TO THE EVENT ON 04/DEC/2015
     Route: 048
     Dates: start: 20151027

REACTIONS (6)
  - Gastrointestinal haemorrhage [Not Recovered/Not Resolved]
  - Multiple organ dysfunction syndrome [Not Recovered/Not Resolved]
  - Pneumonia [Not Recovered/Not Resolved]
  - Gastroenteritis [Not Recovered/Not Resolved]
  - Septic shock [Fatal]
  - Acute respiratory distress syndrome [Not Recovered/Not Resolved]

NARRATIVE: CASE EVENT DATE: 20151205
